FAERS Safety Report 6312119-9 (Version None)
Quarter: 2009Q3

REPORT INFORMATION
  Report Type: 
  Country: None (occurrence: None)
  Receive Date: 20090813
  Receipt Date: 20090813
  Transmission Date: 20100115
  Serious: Yes (Hospitalization)
  Sender: FDA-Public Use
  Company Number: None

PATIENT
  Age: 43 Year
  Sex: Female
  Weight: 74.8435 kg

DRUGS (1)
  1. CIPROFLOXACIN [Suspect]
     Indication: BACTERIAL INFECTION
     Dosage: 1 TABLET 8 HOURS PO
     Route: 048
     Dates: start: 20090729, end: 20090811

REACTIONS (2)
  - HYPOAESTHESIA [None]
  - MUSCLE DISORDER [None]
